FAERS Safety Report 17323040 (Version 2)
Quarter: 2020Q1

REPORT INFORMATION
  Report Type: Report from Study
  Country: IT (occurrence: IT)
  Receive Date: 20200127
  Receipt Date: 20200129
  Transmission Date: 20200409
  Serious: Yes (Death)
  Sender: FDA-Public Use
  Company Number: IT-TEVA-2020-IT-1173185

PATIENT
  Age: 65 Year
  Sex: Female

DRUGS (13)
  1. CARBOPLATINO TEVA 10 MG/ML [Suspect]
     Active Substance: CARBOPLATIN
     Indication: LUNG NEOPLASM
     Dosage: 600 MG
     Route: 042
     Dates: start: 20190801, end: 20191007
  2. MYCOSTATIN 100.000 U.I./ML SOSPENSIONE ORALE [Concomitant]
     Indication: ORAL CANDIDIASIS
     Route: 048
  3. SOLDESAM [Concomitant]
     Active Substance: DEXAMETHASONE
  4. EUTIROX 75 MICROGRAMMI COMPRESSE [Concomitant]
     Active Substance: LEVOTHYROXINE SODIUM
     Indication: HYPOTHYROIDISM
     Dosage: 75 MCG
     Route: 048
  5. FIASP [Concomitant]
     Active Substance: INSULIN ASPART
     Indication: TYPE 2 DIABETES MELLITUS
     Dosage: 26 IU
     Route: 058
  6. CITALOPRAM [Concomitant]
     Active Substance: CITALOPRAM HYDROBROMIDE
     Dosage: 20 MG
     Route: 048
  7. MOVICOL [Concomitant]
     Active Substance: POLYETHYLENE GLYCOL 3350\POTASSIUM CHLORIDE\SODIUM BICARBONATE\SODIUM CHLORIDE
  8. MATRIFEN, 25 MICROGRAMMI/ORA CEROTTO TRANSDERMICO [Concomitant]
     Indication: CANCER PAIN
     Dosage: 25 MCG
     Route: 062
  9. TRESIBA [Concomitant]
     Active Substance: INSULIN DEGLUDEC
     Indication: TYPE 2 DIABETES MELLITUS
     Dosage: 28 IU
     Route: 058
  10. ETOPOSIDE TEVA 20 MG/ML, CONCENTRATO PER SOLUZIONE PER INFUSIONE. [Suspect]
     Active Substance: ETOPOSIDE
     Indication: LUNG NEOPLASM
     Dosage: 165 MG
     Route: 042
     Dates: start: 20190801, end: 20191007
  11. PANTORC 20 MG COMPRESSE GASTRORESISTENTI [Concomitant]
     Active Substance: PANTOPRAZOLE SODIUM
     Indication: CHRONIC GASTRITIS
     Dosage: 20 MG
     Route: 048
  12. LYRICA [Concomitant]
     Active Substance: PREGABALIN
     Dosage: 75 MG
     Route: 048
  13. ARANESP 500 MICROGRAMS SOLUTION FOR INJECTION IN PRE-FILLED SYRINGE [Concomitant]
     Indication: ANAEMIA
     Dosage: 500 MCG
     Route: 058

REACTIONS (1)
  - Pancytopenia [Fatal]

NARRATIVE: CASE EVENT DATE: 20191018
